FAERS Safety Report 17823125 (Version 1)
Quarter: 2020Q2

REPORT INFORMATION
  Report Type: Spontaneous
  Country: US (occurrence: US)
  Receive Date: 20200524
  Receipt Date: 20200524
  Transmission Date: 20200714
  Serious: Yes (Other)
  Sender: FDA-Public Use
  Company Number: None

PATIENT
  Age: 71 Year
  Sex: Male
  Weight: 95.3 kg

DRUGS (14)
  1. APIXABAN 5 MG [Concomitant]
     Active Substance: APIXABAN
     Dates: start: 20200506, end: 20200516
  2. ASPIRIN 81 MG [Concomitant]
     Active Substance: ASPIRIN
     Dates: start: 20200506, end: 20200520
  3. VASOPRESSIN INFUSION [Concomitant]
     Dates: start: 20200516, end: 20200520
  4. FENTANYL INFUSION [Concomitant]
     Active Substance: FENTANYL
     Dates: start: 20200516, end: 20200520
  5. REMDESIVIR INJECTION [Suspect]
     Active Substance: REMDESIVIR
     Indication: COVID-19
     Dosage: ?          OTHER FREQUENCY:ONCE;?
     Route: 042
     Dates: start: 20200516, end: 20200517
  6. UNFRACTIONATED INTRAVENOUS HEPARIN [Concomitant]
     Dates: start: 20200516, end: 20200520
  7. PIPERACILLIN/TAZOBACTAM 4.5 GRAMS Q6H [Concomitant]
     Dates: start: 20200511, end: 20200518
  8. VANCOMYCIN 1250 MG Q12H [Concomitant]
     Dates: start: 20200511, end: 20200512
  9. TRADIPITANT/PLACEBO [Concomitant]
     Dates: start: 20200512, end: 20200520
  10. PROPOFOL INFUSION [Concomitant]
     Active Substance: PROPOFOL
     Dates: start: 20200516, end: 20200520
  11. TOCILIZUMAB 400 MG [Concomitant]
     Dates: start: 20200509, end: 20200509
  12. INSULIN LISPRO SLIDING SCALE [Concomitant]
     Dates: start: 20200512, end: 20200519
  13. NOREPINEPHRINE INFUSION [Concomitant]
     Dates: start: 20200516, end: 20200520
  14. CISATRACURIUM INFUSION [Concomitant]
     Dates: start: 20200516, end: 20200520

REACTIONS (6)
  - Tachypnoea [None]
  - Blood lactic acid decreased [None]
  - Septic shock [None]
  - Renal injury [None]
  - Respiratory rate increased [None]
  - Urinary casts [None]

NARRATIVE: CASE EVENT DATE: 20200516
